FAERS Safety Report 19438892 (Version 1)
Quarter: 2021Q2

REPORT INFORMATION
  Report Type: Spontaneous
  Country: TW (occurrence: TW)
  Receive Date: 20210618
  Receipt Date: 20210618
  Transmission Date: 20210717
  Serious: Yes (Death)
  Sender: FDA-Public Use
  Company Number: NVSC2020TW061253

PATIENT
  Age: 42 Year
  Sex: Female

DRUGS (9)
  1. RITUXIMAB. [Concomitant]
     Active Substance: RITUXIMAB
     Indication: SARCOMA
     Dosage: UNK
     Route: 065
  2. CYCLOPHOSPHAMIDE. [Concomitant]
     Active Substance: CYCLOPHOSPHAMIDE
     Indication: SARCOMA
     Dosage: UNK
     Route: 065
  3. DOXORUBICIN [Concomitant]
     Active Substance: DOXORUBICIN
     Indication: SARCOMA
     Dosage: UNK
     Route: 064
  4. DACARBAZINE. [Concomitant]
     Active Substance: DACARBAZINE
     Indication: SARCOMA
     Dosage: UNK
     Route: 065
  5. CISPLATIN. [Suspect]
     Active Substance: CISPLATIN
     Indication: SARCOMA
     Dosage: UNK
     Route: 065
  6. EVEROLIMUS. [Suspect]
     Active Substance: EVEROLIMUS
     Indication: SARCOMA
     Dosage: UNK
     Route: 065
  7. IFOSFAMIDA [Concomitant]
     Active Substance: IFOSFAMIDE
     Indication: SARCOMA
     Dosage: UNK
     Route: 065
  8. DOCETAXEL. [Suspect]
     Active Substance: DOCETAXEL
     Indication: SARCOMA
     Dosage: UNK
     Route: 065
  9. GEMCITABINE. [Suspect]
     Active Substance: GEMCITABINE
     Indication: SARCOMA
     Dosage: UNK
     Route: 065

REACTIONS (2)
  - Death [Fatal]
  - Drug ineffective for unapproved indication [Unknown]

NARRATIVE: CASE EVENT DATE: 202101
